FAERS Safety Report 21273834 (Version 1)
Quarter: 2022Q3

REPORT INFORMATION
  Report Type: Spontaneous
  Country: US (occurrence: US)
  Receive Date: 20220831
  Receipt Date: 20220831
  Transmission Date: 20221027
  Serious: No
  Sender: FDA-Public Use
  Company Number: US-PFIZER INC-202201104086

PATIENT
  Age: 69 Year
  Sex: Female
  Weight: 65.77 kg

DRUGS (3)
  1. PAXLOVID [Suspect]
     Active Substance: NIRMATRELVIR\RITONAVIR
     Indication: COVID-19 treatment
     Dosage: UNK
     Dates: start: 20220822, end: 20220827
  2. BENTYL [Concomitant]
     Active Substance: DICYCLOMINE HYDROCHLORIDE
     Indication: Abdominal symptom
     Dosage: UNK
  3. TOBRADEX OTO [Concomitant]
     Dosage: UNK
     Route: 047
     Dates: start: 20220819

REACTIONS (13)
  - Dysgeusia [Recovered/Resolved]
  - Oropharyngeal pain [Not Recovered/Not Resolved]
  - Throat tightness [Not Recovered/Not Resolved]
  - Dizziness [Unknown]
  - Hyperhidrosis [Unknown]
  - Back pain [Unknown]
  - Dysphonia [Unknown]
  - Palpitations [Unknown]
  - Disturbance in attention [Unknown]
  - Fatigue [Unknown]
  - Disease recurrence [Not Recovered/Not Resolved]
  - COVID-19 [Not Recovered/Not Resolved]
  - Gait disturbance [Unknown]

NARRATIVE: CASE EVENT DATE: 20220822
